FAERS Safety Report 5071488-0 (Version None)
Quarter: 2006Q3

REPORT INFORMATION
  Report Type: 
  Country: None (occurrence: None)
  Receive Date: 20060803
  Receipt Date: 20060803
  Transmission Date: 20061208
  Serious: Yes (Life-Threatening)
  Sender: FDA-Public Use
  Company Number: None

PATIENT
  Age: 73 Year
  Sex: Female
  Weight: 53 kg

DRUGS (14)
  1. UNIPHYL [Suspect]
     Indication: CHRONIC OBSTRUCTIVE PULMONARY DISEASE
     Dosage: 400 MG BID PO [YEARS]
     Route: 048
  2. CIPROFLOXACIN [Suspect]
     Indication: URINARY TRACT INFECTION
     Dosage: 500 MG BID PO
     Route: 048
     Dates: start: 20060129, end: 20060130
  3. THEOPHYLLINE [Concomitant]
  4. SINGULAIR [Concomitant]
  5. PEPCID AC [Concomitant]
  6. ALPHAGAN [Concomitant]
  7. ISOMETH/APAP/DICHLOR [Concomitant]
  8. LISINOPRIL AND HYDROCHLOROTHIAZIDE [Concomitant]
  9. LIPITOR [Concomitant]
  10. ZOLOFT [Concomitant]
  11. ADVAIR DISKUS 100/50 [Concomitant]
  12. PEG ELECTOLYTE [Concomitant]
  13. FENTANYL [Concomitant]
  14. MIDAZOLAM HYDROCHLORIDE [Concomitant]

REACTIONS (12)
  - ABDOMINAL PAIN [None]
  - ACIDOSIS [None]
  - ARRHYTHMIA [None]
  - CONVULSION [None]
  - DIARRHOEA [None]
  - DRUG INTERACTION [None]
  - DRUG TOXICITY [None]
  - ELECTROLYTE IMBALANCE [None]
  - HAEMODIALYSIS [None]
  - LOSS OF CONSCIOUSNESS [None]
  - NAUSEA [None]
  - URINARY TRACT INFECTION [None]
